FAERS Safety Report 4323971-0 (Version None)
Quarter: 2004Q1

REPORT INFORMATION
  Report Type: 
  Country: None (occurrence: None)
  Receive Date: 20040326
  Receipt Date: 20031202
  Transmission Date: 20041129
  Serious: No
  Sender: FDA-Public Use
  Company Number: US-GLAXOSMITHKLINE-A0441652A

PATIENT
  Age: 76 Year
  Sex: Male

DRUGS (3)
  1. ADVAIR DISKUS 100/50 [Suspect]
     Route: 055
     Dates: start: 20031118
  2. MULTIVITAMIN [Concomitant]
  3. MINERAL TAB [Concomitant]

REACTIONS (2)
  - CONSTIPATION [None]
  - DEPRESSION [None]
